FAERS Safety Report 12408089 (Version 12)
Quarter: 2017Q1

REPORT INFORMATION
  Report Type: Report from Study
  Country: None (occurrence: BE)
  Receive Date: 20160526
  Receipt Date: 20170331
  Transmission Date: 20170428
  Serious: Yes (Hospitalization)
  Sender: FDA-Public Use
  Company Number: BE-ABBVIE-16P-013-1635093-00

PATIENT
  Age: 76 Year
  Sex: Male
  Weight: 70 kg

DRUGS (12)
  1. DUODOPA [Suspect]
     Active Substance: CARBIDOPA\LEVODOPA
     Dosage: AM=3.3ML, CD=3.5ML/HR DURING 16HRS, ED=1.9ML
     Route: 050
     Dates: start: 20160901, end: 20170303
  2. DUODOPA [Suspect]
     Active Substance: CARBIDOPA\LEVODOPA
     Dosage: AM=3.5ML, CD=3.4ML/HR DURING 16HRS, ED=0.5 ML
     Route: 050
     Dates: start: 20170303
  3. SILODYX [Concomitant]
     Active Substance: SILODOSIN
     Indication: PROSTATISM
     Route: 048
  4. DUODOPA [Suspect]
     Active Substance: CARBIDOPA\LEVODOPA
     Dosage: AM:3.4ML; CD: 3.7ML/H FOR 16HRS; ED: 1.9ML
     Route: 050
     Dates: start: 20160804, end: 20160901
  5. DUODOPA [Suspect]
     Active Substance: CARBIDOPA\LEVODOPA
     Indication: PARKINSON^S DISEASE
     Dosage: AM=5 ML; CD=3.6 ML/H DURING 16 HRS; ED=2 ML
     Route: 050
     Dates: start: 20150126, end: 20150127
  6. DUODOPA [Suspect]
     Active Substance: CARBIDOPA\LEVODOPA
     Dosage: AM=3 ML; CD=3.8 ML/H DURING 16 HRS; ED=2.2 ML
     Route: 050
     Dates: start: 20151211, end: 20160524
  7. DUODOPA [Suspect]
     Active Substance: CARBIDOPA\LEVODOPA
     Dosage: AM=6.5 ML; CD=3.5 ML/H DURING 16 HRS; ED=1.6 ML
     Route: 050
     Dates: start: 20160524, end: 20160725
  8. DUODOPA [Suspect]
     Active Substance: CARBIDOPA\LEVODOPA
     Dosage: AM DOSE=3.5ML; CD=3.9ML/H DURING 16HRS AND ED=1.5ML
     Route: 050
     Dates: start: 20160725, end: 20160804
  9. QUETIAPINE. [Concomitant]
     Active Substance: QUETIAPINE
     Indication: PRODUCT USED FOR UNKNOWN INDICATION
     Route: 065
  10. ZESTRIL [Concomitant]
     Active Substance: LISINOPRIL
     Indication: HYPERTENSION
     Route: 048
  11. URFADYN PL [Concomitant]
     Active Substance: NIFURTOINOL
     Indication: URINARY TRACT INFECTION
     Route: 048
  12. DUODOPA [Suspect]
     Active Substance: CARBIDOPA\LEVODOPA
     Dosage: DOSES CONTINUOUSLY MONITORED AND ADAPTED
     Route: 050
     Dates: start: 20150127, end: 20151211

REACTIONS (13)
  - Paranoia [Recovering/Resolving]
  - Cognitive disorder [Unknown]
  - Stoma site hypergranulation [Unknown]
  - Dysphagia [Unknown]
  - Fall [Unknown]
  - Hallucination [Unknown]
  - General physical health deterioration [Not Recovered/Not Resolved]
  - Stoma site oedema [Unknown]
  - Lumbar vertebral fracture [Recovering/Resolving]
  - Rib fracture [Unknown]
  - Weight decreased [Recovering/Resolving]
  - Confusional state [Unknown]
  - Stomal hernia [Not Recovered/Not Resolved]

NARRATIVE: CASE EVENT DATE: 20160519
